FAERS Safety Report 16389686 (Version 1)
Quarter: 2019Q3

REPORT INFORMATION
  Report Type: Spontaneous
  Country: US (occurrence: US)
  Receive Date: 20190603
  Receipt Date: 20190603
  Transmission Date: 20191004
  Serious: Yes (Other)
  Sender: FDA-Public Use
  Company Number: None

PATIENT
  Age: 80 Year
  Sex: Male
  Weight: 74.88 kg

DRUGS (7)
  1. PSYLLIUM HUSK. [Concomitant]
     Active Substance: PSYLLIUM HUSK
  2. BIOTIN [Concomitant]
     Active Substance: BIOTIN
  3. VITAMIN E [Concomitant]
     Active Substance: .ALPHA.-TOCOPHEROL
  4. CAPECITABINE. [Suspect]
     Active Substance: CAPECITABINE
     Indication: COLON CANCER
     Dosage: ?          OTHER FREQUENCY:2000MGQAM;?
     Route: 048
     Dates: start: 20190318
  5. VITAMIN C [Concomitant]
     Active Substance: ASCORBIC ACID
  6. MULTI VITAMIN DAILY [Concomitant]
  7. OMEGA 3 [Concomitant]
     Active Substance: OMEGA-3 FATTY ACIDS

REACTIONS (2)
  - Rash [None]
  - Diarrhoea [None]
